FAERS Safety Report 10159524 (Version 2)
Quarter: 2014Q2

REPORT INFORMATION
  Report Type: Spontaneous
  Country: US (occurrence: US)
  Receive Date: 20140508
  Receipt Date: 20140616
  Transmission Date: 20141212
  Serious: Yes (Other)
  Sender: FDA-Public Use
  Company Number: US-PFIZER INC-2014126558

PATIENT
  Age: 51 Year
  Sex: Female
  Weight: 55.78 kg

DRUGS (1)
  1. ZOLOFT [Suspect]
     Indication: ANXIETY
     Dosage: 100 MG, 2X/DAY
     Dates: start: 2000

REACTIONS (1)
  - Rheumatoid arthritis [Unknown]
